FAERS Safety Report 9394037 (Version 1)
Quarter: 2013Q3

REPORT INFORMATION
  Report Type: Spontaneous
  Country: MX (occurrence: MX)
  Receive Date: 20130710
  Receipt Date: 20130710
  Transmission Date: 20140515
  Serious: Yes (Death, Hospitalization)
  Sender: FDA-Public Use
  Company Number: MX-ACTELION-A-CH2013-85477

PATIENT
  Age: 46 Year
  Sex: Female

DRUGS (2)
  1. TRACLEER [Suspect]
     Indication: PULMONARY ARTERIAL HYPERTENSION
     Dosage: 125 MG, UNK
     Route: 048
  2. SILDENAFIL [Concomitant]
     Route: 048

REACTIONS (2)
  - Death [Fatal]
  - Acute respiratory failure [Unknown]
